FAERS Safety Report 6521153-5 (Version None)
Quarter: 2009Q4

REPORT INFORMATION
  Report Type: 
  Country: None (occurrence: None)
  Receive Date: 20091222
  Receipt Date: 20070202
  Transmission Date: 20100525
  Serious: No
  Sender: FDA-Public Use
  Company Number: 2009012073

PATIENT
  Sex: Female

DRUGS (2)
  1. FENTORA [Suspect]
     Indication: FIBROMYALGIA
     Dosage: (1 TABLET),BU; (2 TABLETS), BU
     Route: 002
  2. KADIAN (MORPHINE SULFATE) (200 MILLIGRAM,  CAPSULES) [Concomitant]

REACTIONS (3)
  - DRUG INEFFECTIVE [None]
  - DRUG PRESCRIBING ERROR [None]
  - PRODUCT QUALITY ISSUE [None]
